FAERS Safety Report 7951668-4 (Version None)
Quarter: 2011Q4

REPORT INFORMATION
  Report Type: 
  Country: None (occurrence: None)
  Receive Date: 20111201
  Receipt Date: 20111122
  Transmission Date: 20120403
  Serious: Yes (Hospitalization)
  Sender: FDA-Public Use
  Company Number: CH-NOVOPROD-334839

PATIENT

DRUGS (7)
  1. ASPIRIN [Concomitant]
     Dosage: 100 MG, UNK
  2. LANTUS [Concomitant]
     Dosage: 20 UNK, UNK
  3. LASIX [Concomitant]
  4. VICTOZA [Suspect]
     Indication: TYPE 2 DIABETES MELLITUS
     Dosage: UNK
     Route: 065
     Dates: start: 20110705, end: 20110808
  5. METFORMIN HCL [Concomitant]
     Dosage: 850 MG, UNK
  6. DIAMICRON [Concomitant]
     Dosage: 60 MG, UNK
  7. DEPAKENE [Concomitant]
     Dosage: 500 MG, UNK

REACTIONS (1)
  - PANCREATITIS ACUTE [None]
